FAERS Safety Report 25030355 (Version 1)
Quarter: 2025Q1

REPORT INFORMATION
  Report Type: Spontaneous
  Country: US (occurrence: US)
  Receive Date: 20250303
  Receipt Date: 20250303
  Transmission Date: 20250409
  Serious: No
  Sender: MERCK SHARP & DOHME LLC
  Company Number: US-009507513-2253841

PATIENT
  Sex: Male
  Weight: 88.4 kg

DRUGS (28)
  1. WINREVAIR [Suspect]
     Active Substance: SOTATERCEPT-CSRK
  2. WINREVAIR [Suspect]
     Active Substance: SOTATERCEPT-CSRK
  3. WINREVAIR [Suspect]
     Active Substance: SOTATERCEPT-CSRK
  4. WINREVAIR [Suspect]
     Active Substance: SOTATERCEPT-CSRK
  5. Treprostinil sodium REMODULIN [Concomitant]
     Indication: Pulmonary arterial hypertension
     Route: 058
     Dates: start: 20240503
  6. EZETIMIBE [Concomitant]
     Active Substance: EZETIMIBE
  7. Ibu (ibuprofen) [Concomitant]
  8. SODIUM CHLORIDE [Concomitant]
     Active Substance: SODIUM CHLORIDE
  9. OPSUMIT [Concomitant]
     Active Substance: MACITENTAN
  10. KETAMINE HYDROCHLORIDE [Concomitant]
     Active Substance: KETAMINE HYDROCHLORIDE
  11. LECITHIN [Concomitant]
     Active Substance: LECITHIN
  12. DOXYCYCLINE HYCLATE [Concomitant]
     Active Substance: DOXYCYCLINE HYCLATE
  13. ALLOPURINOL [Concomitant]
     Active Substance: ALLOPURINOL
  14. SILDENAFIL [Concomitant]
     Active Substance: SILDENAFIL
  15. CLONIDINE [Concomitant]
     Active Substance: CLONIDINE
  16. KETOPROFEN [Concomitant]
     Active Substance: KETOPROFEN
  17. PREDNISONE [Concomitant]
     Active Substance: PREDNISONE
  18. ASPIRIN [Concomitant]
     Active Substance: ASPIRIN
  19. COLCHICINE [Concomitant]
     Active Substance: COLCHICINE
  20. LIDOCAINE HYDROCHLORIDE [Concomitant]
     Active Substance: LIDOCAINE HYDROCHLORIDE
  21. FUROSEMIDE [Concomitant]
     Active Substance: FUROSEMIDE
  22. ACETAMINOPHEN [Concomitant]
     Active Substance: ACETAMINOPHEN
  23. AMITRIPTYLINE HYDROCHLORIDE [Concomitant]
     Active Substance: AMITRIPTYLINE HYDROCHLORIDE
  24. GABAPENTIN [Concomitant]
     Active Substance: GABAPENTIN
  25. POLOXAMER [Concomitant]
     Active Substance: POLOXAMER
  26. FERROUS SULFATE [Concomitant]
     Active Substance: FERROUS SULFATE
  27. LEVOTHYROXINE SODIUM [Concomitant]
     Active Substance: LEVOTHYROXINE SODIUM
  28. OXYGEN [Concomitant]
     Active Substance: OXYGEN

REACTIONS (1)
  - Dyspepsia [Not Recovered/Not Resolved]
